FAERS Safety Report 4861055-3 (Version None)
Quarter: 2005Q4

REPORT INFORMATION
  Report Type: 
  Country: None (occurrence: None)
  Receive Date: 20051220
  Receipt Date: 20050607
  Transmission Date: 20060501
  Serious: Yes (Hospitalization)
  Sender: FDA-Public Use
  Company Number: CA-GLAXOSMITHKLINE-A0562307A

PATIENT
  Age: 31 Year
  Sex: Female
  Weight: 69.1 kg

DRUGS (1)
  1. VALTREX [Suspect]
     Route: 048
     Dates: start: 20041201

REACTIONS (4)
  - BREECH PRESENTATION [None]
  - CAESAREAN SECTION [None]
  - HEPATIC ENZYME INCREASED [None]
  - PREGNANCY INDUCED HYPERTENSION [None]
